FAERS Safety Report 18344477 (Version 1)
Quarter: 2020Q4

REPORT INFORMATION
  Report Type: Spontaneous
  Country: FR (occurrence: FR)
  Receive Date: 20201005
  Receipt Date: 20201005
  Transmission Date: 20210114
  Serious: Yes (Death, Life-Threatening)
  Sender: FDA-Public Use
  Company Number: FR-MYLANLABS-2020M1083093

PATIENT
  Age: 65 Year
  Sex: Female
  Weight: 63 kg

DRUGS (2)
  1. LARGACTIL                          /00011902/ [Suspect]
     Active Substance: CHLORPROMAZINE HYDROCHLORIDE
     Indication: PALLIATIVE CARE
     Dosage: 50 MILLIGRAM, TOTAL
     Route: 041
     Dates: start: 20200616, end: 20200616
  2. MIDAZOLAM. [Suspect]
     Active Substance: MIDAZOLAM
     Indication: PALLIATIVE CARE
     Dosage: 60 MILLIGRAM, TOTAL
     Route: 041
     Dates: start: 20200616, end: 20200616

REACTIONS (2)
  - Coma [Fatal]
  - Incorrect drug administration rate [Fatal]

NARRATIVE: CASE EVENT DATE: 20200616
